FAERS Safety Report 12384499 (Version 2)
Quarter: 2016Q2

REPORT INFORMATION
  Report Type: Spontaneous
  Country: US (occurrence: US)
  Receive Date: 20160519
  Receipt Date: 20160610
  Transmission Date: 20160815
  Serious: Yes (Other)
  Sender: FDA-Public Use
  Company Number: US-AUROBINDO-AUR-APL-2016-06256

PATIENT
  Age: 22 Year
  Sex: Female

DRUGS (3)
  1. LIDOCAINE INJECTION [Suspect]
     Active Substance: LIDOCAINE
     Indication: PRODUCT USED FOR UNKNOWN INDICATION
     Dosage: 100 MG, 5 ML OF 2% LIDOCAINE (100 MG)
     Route: 065
  2. LIDOCAINE INJECTION [Suspect]
     Active Substance: LIDOCAINE
     Dosage: UNK, TOTALING 18 ML OF LIDOCAINE, 360 MG OR 5 MG PER KILOGRAM BODY WEIGHT
     Route: 058
  3. LIDOCAINE INJECTION [Suspect]
     Active Substance: LIDOCAINE
     Dosage: UNK, 18 ML OF LIDOCAINE, 360 MG OR 5 MG PER KILOGRAM BODY WEIGHT
     Route: 065

REACTIONS (9)
  - Hoigne^s syndrome [Recovering/Resolving]
  - Paraesthesia [Recovering/Resolving]
  - Dizziness [Recovering/Resolving]
  - Tearfulness [Recovering/Resolving]
  - Illusion [Recovering/Resolving]
  - Feeling abnormal [Recovering/Resolving]
  - Tachycardia [Recovering/Resolving]
  - Restlessness [Recovering/Resolving]
  - Anxiety [Recovering/Resolving]
